FAERS Safety Report 11321179 (Version 1)
Quarter: 2015Q3

REPORT INFORMATION
  Report Type: Spontaneous
  Country: US (occurrence: US)
  Receive Date: 20150729
  Receipt Date: 20150729
  Transmission Date: 20151125
  Serious: Yes (Hospitalization, Disabling, Other)
  Sender: FDA-Public Use
  Company Number: US-GLENMARK PHARMACEUTICALS INC, USA.-2015GMK018437

PATIENT
  Age: 25 Year
  Sex: Male

DRUGS (2)
  1. ONDANSETRON [Suspect]
     Active Substance: ONDANSETRON
     Indication: NAUSEA
     Dosage: 40 DF, QD
  2. ONDANSETRON [Suspect]
     Active Substance: ONDANSETRON
     Indication: HEADACHE

REACTIONS (7)
  - Cerebral haemorrhage [Recovering/Resolving]
  - Brain oedema [Recovering/Resolving]
  - Sudden visual loss [Recovering/Resolving]
  - Off label use [Unknown]
  - Overdose [Recovering/Resolving]
  - Posterior reversible encephalopathy syndrome [Recovering/Resolving]
  - Intracranial pressure increased [Recovering/Resolving]
